FAERS Safety Report 15196540 (Version 1)
Quarter: 2018Q3

REPORT INFORMATION
  Report Type: Spontaneous
  Country: US (occurrence: US)
  Receive Date: 20180626
  Receipt Date: 20180626
  Transmission Date: 20181010
  Serious: Yes (Hospitalization)
  Sender: FDA-Public Use
  Company Number: None

PATIENT
  Age: 50 Year
  Sex: Female

DRUGS (9)
  1. NITROFUR MAC [Concomitant]
     Active Substance: NITROFURANTOIN
  2. FOLIC ACID. [Concomitant]
     Active Substance: FOLIC ACID
  3. VIT D3 / VIT C CAP [Concomitant]
  4. TRAZODONE [Concomitant]
     Active Substance: TRAZODONE HYDROCHLORIDE
  5. LEVOTHYROXIN [Concomitant]
     Active Substance: LEVOTHYROXINE
  6. FORTEO [Suspect]
     Active Substance: TERIPARATIDE
     Indication: OSTEOPOROSIS
     Route: 058
     Dates: start: 20170302
  7. CALCIUM [Concomitant]
     Active Substance: CALCIUM
  8. CLONAZEPAM. [Concomitant]
     Active Substance: CLONAZEPAM
  9. BUPROPION. [Concomitant]
     Active Substance: BUPROPION

REACTIONS (2)
  - Spinal operation [None]
  - Drug dose omission [None]

NARRATIVE: CASE EVENT DATE: 20180621
